FAERS Safety Report 7423761-6 (Version None)
Quarter: 2011Q3

REPORT INFORMATION
  Report Type: 
  Country: None (occurrence: None)
  Receive Date: 20110414
  Receipt Date: 20110414
  Transmission Date: 20111222
  Serious: Yes (Other)
  Sender: FDA-Public Use
  Company Number: None

PATIENT
  Sex: Female
  Weight: 77.1115 kg

DRUGS (2)
  1. AMLODIPINE BESYLATE AND BENAZEPRIL HCL [Suspect]
     Indication: HYPERTENSION
     Dosage: ONE TABLET QD PO
     Route: 048
     Dates: start: 20110107, end: 20110117
  2. AMLODIPINE BESYLATE AND BENAZEPRIL HCL [Suspect]
     Indication: HYPERTENSION
     Dosage: ONE TABLET QD PO
     Route: 048
     Dates: start: 20100101, end: 20100110

REACTIONS (5)
  - PRODUCT SUBSTITUTION ISSUE [None]
  - PALPITATIONS [None]
  - CHEST DISCOMFORT [None]
  - BLOOD PRESSURE INCREASED [None]
  - MUSCULOSKELETAL DISCOMFORT [None]
